FAERS Safety Report 8512975-X (Version None)
Quarter: 2012Q3

REPORT INFORMATION
  Report Type: 
  Country: None (occurrence: None)
  Receive Date: 20120716
  Receipt Date: 20120705
  Transmission Date: 20120928
  Serious: Yes (Hospitalization, Other)
  Sender: FDA-Public Use
  Company Number: US-ASTRAZENECA-2012SE45784

PATIENT
  Age: 71 Year
  Sex: Female
  Weight: 68 kg

DRUGS (18)
  1. NEXIUM [Suspect]
     Dosage: ESOMEPRAZOLE (GENERIC)
     Route: 048
  2. PRADAXA [Concomitant]
  3. DILTIAZEM [Concomitant]
     Indication: HYPERTENSION
  4. LOSARTAN POTASSIUM [Concomitant]
     Indication: HYPERTENSION
     Route: 048
  5. NEXIUM [Suspect]
     Dosage: PRN
     Route: 048
  6. NEXIUM [Suspect]
     Dosage: ESOMEPRAZOLE (GENERIC)
     Route: 048
  7. OMEPRAZOLE [Suspect]
     Route: 048
  8. CLARITIN [Concomitant]
     Indication: MULTIPLE ALLERGIES
     Dosage: PRN
     Route: 048
  9. NEXIUM [Suspect]
     Dosage: PRN
     Route: 048
  10. NEXIUM [Suspect]
     Dosage: PRN
     Route: 048
  11. NEXIUM [Suspect]
     Dosage: ESOMEPRAZOLE (GENERIC)
     Route: 048
  12. ACETAMINOPHEN [Concomitant]
  13. NEXIUM [Suspect]
     Indication: GASTROOESOPHAGEAL REFLUX DISEASE
     Route: 048
     Dates: start: 20050101, end: 20120401
  14. PRAVACHOL [Concomitant]
     Indication: BLOOD CHOLESTEROL INCREASED
     Route: 048
  15. NEXIUM [Suspect]
     Route: 048
     Dates: start: 20050101, end: 20120401
  16. NEXIUM [Suspect]
     Indication: HIATUS HERNIA
     Route: 048
     Dates: start: 20050101, end: 20120401
  17. LEVOXYL [Concomitant]
  18. ASPIRIN [Concomitant]

REACTIONS (10)
  - ATRIAL FIBRILLATION [None]
  - INTENTIONAL DRUG MISUSE [None]
  - CHEST PAIN [None]
  - FALL [None]
  - DRUG DOSE OMISSION [None]
  - NERVE COMPRESSION [None]
  - THERAPEUTIC RESPONSE UNEXPECTED WITH DRUG SUBSTITUTION [None]
  - GASTRITIS [None]
  - CEREBROVASCULAR ACCIDENT [None]
  - TRANSIENT ISCHAEMIC ATTACK [None]
